FAERS Safety Report 15306454 (Version 2)
Quarter: 2018Q3

REPORT INFORMATION
  Report Type: Report from Study
  Country: US (occurrence: US)
  Receive Date: 20180822
  Receipt Date: 20180824
  Transmission Date: 20181010
  Serious: No
  Sender: FDA-Public Use
  Company Number: US-SA-2018SA226730

PATIENT
  Age: 60 Year
  Sex: Female
  Weight: 89.5 kg

DRUGS (21)
  1. BLINDED ALIROCUMAB [Suspect]
     Active Substance: ALIROCUMAB
     Indication: HYPERCHOLESTEROLAEMIA
     Dosage: UNK, QOW
     Route: 058
     Dates: start: 20171212
  2. BLINDED NO STUDY DRUG GIVEN [Suspect]
     Active Substance: INVESTIGATIONAL PRODUCT
     Indication: HYPERCHOLESTEROLAEMIA
     Dosage: UNK, QOW
     Route: 058
     Dates: start: 20171212
  3. METOPROLOL. [Concomitant]
     Active Substance: METOPROLOL
     Dosage: 50 UNK
     Route: 048
     Dates: start: 2016, end: 20180322
  4. ALBUTEROL SULFATE. [Concomitant]
     Active Substance: ALBUTEROL SULFATE
     Indication: HYPERSENSITIVITY
     Dosage: 90 UG, PRN
     Route: 055
     Dates: start: 201709
  5. BLINDED ALIROCUMAB [Suspect]
     Active Substance: ALIROCUMAB
     Indication: HYPERCHOLESTEROLAEMIA
     Dosage: UNK, QOW
     Route: 058
     Dates: start: 20171212
  6. BLINDED PLACEBO [Suspect]
     Active Substance: INVESTIGATIONAL PRODUCT
     Indication: HYPERCHOLESTEROLAEMIA
     Dosage: UNK, QOW
     Route: 058
     Dates: start: 20171212
  7. TIAZAC [DILTIAZEM HYDROCHLORIDE] [Concomitant]
     Indication: HYPERTENSION
     Dosage: 240 MG, QD
     Route: 048
     Dates: start: 2015
  8. METFORMIN [Concomitant]
     Active Substance: METFORMIN HYDROCHLORIDE
     Indication: TYPE 2 DIABETES MELLITUS
     Dosage: 1000 MG, BID
     Route: 048
     Dates: start: 2016
  9. BLINDED RED YEAST RICE [Suspect]
     Active Substance: DIETARY SUPPLEMENT
     Indication: HYPERCHOLESTEROLAEMIA
     Dosage: UNK, QOW
     Route: 058
     Dates: start: 20171212
  10. METOPROLOL. [Concomitant]
     Active Substance: METOPROLOL
     Indication: CORONARY ARTERY DISEASE
     Dosage: 25 MG, QD
     Route: 048
     Dates: start: 20180323
  11. LOSARTAN. [Concomitant]
     Active Substance: LOSARTAN
     Indication: HYPERTENSION
     Dosage: 100 MG, QD
     Route: 048
     Dates: start: 2010
  12. BLINDED FENOFIBRIC ACID [Suspect]
     Active Substance: FENOFIBRIC ACID
     Indication: HYPERCHOLESTEROLAEMIA
     Dosage: UNK, QOW
     Route: 058
     Dates: start: 20171212
  13. POTASSIUM CHLORIDE. [Concomitant]
     Active Substance: POTASSIUM CHLORIDE
     Indication: HYPOKALAEMIA
     Dosage: 20 MEQ, QD
     Route: 048
     Dates: start: 20180601
  14. ASPIRIN (E.C.) [Concomitant]
     Active Substance: ASPIRIN
     Indication: CORONARY ARTERY DISEASE
     Dosage: 81 MG, QD
     Route: 048
     Dates: start: 201511
  15. HUMULIN NOS [Concomitant]
     Active Substance: INSULIN HUMAN
     Indication: TYPE 2 DIABETES MELLITUS
     Dosage: 50?35  ML
     Route: 058
     Dates: start: 2016
  16. VITRON C [Concomitant]
     Active Substance: ASCORBIC ACID\IRON
     Dosage: 1 DF, QD
     Route: 048
     Dates: start: 20180302
  17. BLINDED ALIROCUMAB [Suspect]
     Active Substance: ALIROCUMAB
     Indication: HYPERCHOLESTEROLAEMIA
     Dosage: UNK, QOW
     Route: 058
     Dates: start: 20171212
  18. EZETIMIBE. [Suspect]
     Active Substance: EZETIMIBE
     Indication: HYPERLIPIDAEMIA
     Dosage: 10 MG, QD
     Route: 048
     Dates: start: 2016
  19. ALIROCUMAB PREFILLED PEN [Suspect]
     Active Substance: ALIROCUMAB
     Indication: HYPERCHOLESTEROLAEMIA
     Dosage: UNK
     Route: 058
     Dates: start: 20171212
  20. ATORVASTATIN CALCIUM. [Suspect]
     Active Substance: ATORVASTATIN CALCIUM
     Indication: HYPERLIPIDAEMIA
     Dosage: 80 MG, QD
     Route: 048
     Dates: start: 2015
  21. HYDROCHLOROTHIAZIDE. [Concomitant]
     Active Substance: HYDROCHLOROTHIAZIDE
     Indication: HYPERTENSION
     Dosage: 12.5 MG, QD
     Route: 048
     Dates: start: 2010

REACTIONS (1)
  - Cataract [Recovered/Resolved]

NARRATIVE: CASE EVENT DATE: 20180613
